FAERS Safety Report 18593487 (Version 2)
Quarter: 2021Q2

REPORT INFORMATION
  Report Type: Report from Study
  Country: BR (occurrence: BR)
  Receive Date: 20201208
  Receipt Date: 20210525
  Transmission Date: 20210717
  Serious: Yes (Other)
  Sender: FDA-Public Use
  Company Number: BR-JNJFOC-20201204530

PATIENT
  Sex: Male
  Weight: 117 kg

DRUGS (2)
  1. STELARA [Suspect]
     Active Substance: USTEKINUMAB
     Indication: PSORIASIS
     Dosage: 2 SYRINGES OF 45 MG
     Route: 058
     Dates: start: 202003
  2. STELARA [Suspect]
     Active Substance: USTEKINUMAB

REACTIONS (2)
  - Tuberculosis [Recovered/Resolved]
  - Psoriasis [Not Recovered/Not Resolved]
